FAERS Safety Report 9790095 (Version 1)
Quarter: 2013Q4

REPORT INFORMATION
  Report Type: Spontaneous
  Country: US (occurrence: None)
  Receive Date: 20131230
  Receipt Date: 20131230
  Transmission Date: 20140711
  Serious: No
  Sender: FDA-Public Use
  Company Number: None

PATIENT
  Age: 33 Year
  Sex: Male
  Weight: 83.92 kg

DRUGS (2)
  1. SILDENAFIL [Suspect]
     Indication: SEXUAL DYSFUNCTION
  2. TADALAFIL [Suspect]

REACTIONS (1)
  - Erection increased [None]
